FAERS Safety Report 5113764-9 (Version None)
Quarter: 2006Q3

REPORT INFORMATION
  Report Type: 
  Country: None (occurrence: None)
  Receive Date: 20060921
  Receipt Date: 20060921
  Transmission Date: 20061208
  Serious: Yes (Death)
  Sender: FDA-Public Use
  Company Number: None

PATIENT
  Sex: Female

DRUGS (2)
  1. GEMCITABINE [Suspect]
     Indication: THROMBOTIC MICROANGIOPATHY
  2. CEFTRIAXONE [Suspect]
     Indication: LUNG INFECTION

REACTIONS (2)
  - HAEMOLYTIC ANAEMIA [None]
  - THROMBOTIC MICROANGIOPATHY [None]
